FAERS Safety Report 7291576-8 (Version None)
Quarter: 2011Q1

REPORT INFORMATION
  Report Type: 
  Country: None (occurrence: None)
  Receive Date: 20110214
  Receipt Date: 20110204
  Transmission Date: 20110831
  Serious: Yes (Disabling)
  Sender: FDA-Public Use
  Company Number: PHHO2009FR09265

PATIENT
  Sex: Female
  Weight: 72 kg

DRUGS (8)
  1. CALCIUM [Concomitant]
  2. ADRIAMYCIN PFS [Concomitant]
     Dosage: UNK
     Dates: start: 20080129, end: 20080624
  3. ZOLEDRONATE [Suspect]
     Indication: BONE SARCOMA
     Dosage: 4 MG, UNK
     Route: 042
     Dates: start: 20070925
  4. ETOPOSIDE [Concomitant]
     Dosage: UNK
     Dates: start: 20071013, end: 20071121
  5. METHOTREXATE [Concomitant]
     Dosage: UNK
     Dates: start: 20070922, end: 20080318
  6. CISPLATIN [Concomitant]
     Dosage: UNK
     Dates: start: 20080129, end: 20080602
  7. VITAMIN D [Concomitant]
  8. IFOSFAMIDE [Concomitant]
     Dosage: UNK
     Dates: start: 20071013, end: 20071121

REACTIONS (2)
  - AMENORRHOEA [None]
  - OVARIAN FAILURE [None]
